FAERS Safety Report 7283167-X (Version None)
Quarter: 2011Q1

REPORT INFORMATION
  Report Type: 
  Country: None (occurrence: None)
  Receive Date: 20110204
  Receipt Date: 20110204
  Transmission Date: 20110831
  Serious: Yes (Life-Threatening)
  Sender: FDA-Public Use
  Company Number: None

PATIENT
  Sex: Female
  Weight: 87.7 kg

DRUGS (1)
  1. METHYLDOPA [Suspect]
     Indication: HYPERTENSION
     Dosage: 500MG 2 TIMES A DAY
     Dates: start: 20071101, end: 20081101

REACTIONS (13)
  - ASTHENIA [None]
  - PARAESTHESIA [None]
  - PAIN IN EXTREMITY [None]
  - ABASIA [None]
  - WEIGHT INCREASED [None]
  - VISUAL IMPAIRMENT [None]
  - CARDIOMEGALY [None]
  - CHEST DISCOMFORT [None]
  - DRY MOUTH [None]
  - HEADACHE [None]
  - OEDEMA PERIPHERAL [None]
  - DYSPNOEA [None]
  - DISTURBANCE IN ATTENTION [None]
